FAERS Safety Report 18319348 (Version 1)
Quarter: 2020Q3

REPORT INFORMATION
  Report Type: Spontaneous
  Country: SE (occurrence: SE)
  Receive Date: 20200928
  Receipt Date: 20200928
  Transmission Date: 20201103
  Serious: Yes (Disabling)
  Sender: FDA-Public Use
  Company Number: NVSC2020SE258945

PATIENT
  Age: 74 Year
  Sex: Female

DRUGS (2)
  1. ATORVASTATIN 1A FARMA 20 MG FILMDRAGERADE TABLETTER [Suspect]
     Active Substance: ATORVASTATIN CALCIUM TRIHYDRATE
     Indication: HYPERLIPIDAEMIA
     Dosage: 20 MG, QD
     Route: 048
     Dates: start: 20200528, end: 20200630
  2. ATORVASTATIN 1A FARMA 20 MG FILMDRAGERADE TABLETTER [Suspect]
     Active Substance: ATORVASTATIN CALCIUM TRIHYDRATE
     Indication: PROPHYLAXIS

REACTIONS (1)
  - Dyspnoea [Recovered/Resolved]

NARRATIVE: CASE EVENT DATE: 20200528
